FAERS Safety Report 6154311-2 (Version None)
Quarter: 2009Q2

REPORT INFORMATION
  Report Type: 
  Country: None (occurrence: None)
  Receive Date: 20090414
  Receipt Date: 20090407
  Transmission Date: 20091009
  Serious: Yes (Hospitalization)
  Sender: FDA-Public Use
  Company Number: US-KINGPHARMUSA00001-K200900397

PATIENT
  Age: 80 Year
  Sex: Male

DRUGS (2)
  1. ALTACE [Suspect]
     Indication: HYPERTENSION
     Dosage: UNK
  2. AMARYL [Suspect]
     Route: 048

REACTIONS (6)
  - BLADDER NEOPLASM [None]
  - DIVERTICULUM INTESTINAL [None]
  - DRUG DISPENSING ERROR [None]
  - HYPOGLYCAEMIC COMA [None]
  - MALAISE [None]
  - SYNCOPE [None]
